FAERS Safety Report 19653764 (Version 2)
Quarter: 2021Q3

REPORT INFORMATION
  Report Type: Spontaneous
  Country: PE (occurrence: PE)
  Receive Date: 20210804
  Receipt Date: 20210812
  Transmission Date: 20211014
  Serious: Yes (Hospitalization, Other)
  Sender: FDA-Public Use
  Company Number: PE-B.I. PHARMACEUTICALS,INC./RIDGEFIELD-2021-BI-119246

PATIENT
  Age: 91 Year
  Sex: Female
  Weight: 64 kg

DRUGS (5)
  1. MICARDIS AMLO [Suspect]
     Active Substance: AMLODIPINE BESYLATE\TELMISARTAN
     Indication: HYPERTENSION
     Dosage: 80/5 MG QD; HERE WERE DAYS THAT SHE TOOK AT 1500 HOURS
     Route: 048
     Dates: start: 202011, end: 20210420
  2. MICARDIS AMLO [Suspect]
     Active Substance: AMLODIPINE BESYLATE\TELMISARTAN
     Dosage: 80/5 MG; THE PATIENT HAD PRESSURES OF 80/95 MMHG AND SHE TOOK IT IN 2 HALVES ON THE SAME DAY
     Route: 048
  3. GLUCOPHAGE XR [Concomitant]
     Active Substance: METFORMIN HYDROCHLORIDE
     Indication: TYPE 2 DIABETES MELLITUS
     Dosage: 750 MG QD
     Route: 048
  4. NEURONTIN [Concomitant]
     Active Substance: GABAPENTIN
     Indication: NEUROPATHY PERIPHERAL
     Route: 048
  5. LIPIPRESS [Concomitant]
     Indication: HYPERTRIGLYCERIDAEMIA
     Dosage: 10 MG QD
     Route: 048

REACTIONS (2)
  - Hypertensive crisis [Recovered/Resolved]
  - Wrong technique in product usage process [Recovered/Resolved]

NARRATIVE: CASE EVENT DATE: 202011
